FAERS Safety Report 14165299 (Version 4)
Quarter: 2018Q2

REPORT INFORMATION
  Report Type: Spontaneous
  Country: US (occurrence: US)
  Receive Date: 20171107
  Receipt Date: 20180521
  Transmission Date: 20180711
  Serious: Yes (Other)
  Sender: FDA-Public Use
  Company Number: US-009507513-1710USA014973

PATIENT
  Age: 55 Year
  Sex: Male
  Weight: 97 kg

DRUGS (32)
  1. LIDOCAINE. [Suspect]
     Active Substance: LIDOCAINE
     Indication: INDUCTION OF ANAESTHESIA
     Dosage: 80 MG, UNK
  2. CLINDAMYCIN. [Concomitant]
     Active Substance: CLINDAMYCIN
     Dosage: 900 MG, UNK
     Route: 042
  3. OXYGEN. [Concomitant]
     Active Substance: OXYGEN
     Dosage: PREOXYGENATION
  4. ACETAMINOPHEN. [Concomitant]
     Active Substance: ACETAMINOPHEN
  5. ZEMURON [Suspect]
     Active Substance: ROCURONIUM BROMIDE
     Dosage: 5 MG, UNK
  6. PROPOFOL. [Suspect]
     Active Substance: PROPOFOL
     Indication: INDUCTION OF ANAESTHESIA
     Dosage: 200 MG (ALSO REPORTED AS 2.1 MG/KG)
  7. DULOXETINE HYDROCHLORIDE. [Concomitant]
     Active Substance: DULOXETINE HYDROCHLORIDE
     Dosage: 60 MG, (2 HOURS BEFORE ARRIVAL)
  8. DICLOFENAC [Concomitant]
     Active Substance: DICLOFENAC
     Dosage: 75 MG, UNK
  9. DESFLURANE. [Concomitant]
     Active Substance: DESFLURANE
  10. SUCCINYLCHOLINE CHLORIDE. [Suspect]
     Active Substance: SUCCINYLCHOLINE CHLORIDE
     Indication: INDUCTION OF ANAESTHESIA
     Dosage: 140 MG, UNK
  11. TRAMADOL HYDROCHLORIDE. [Concomitant]
     Active Substance: TRAMADOL HYDROCHLORIDE
     Dosage: UNK MG, UNK
  12. ASPIRIN. [Concomitant]
     Active Substance: ASPIRIN
     Dosage: 81 MG, UNK
     Route: 048
  13. FAMOTIDINE. [Concomitant]
     Active Substance: FAMOTIDINE
     Dosage: 20 MG, UNK
     Route: 042
  14. DIPHENHYDRAMINE. [Concomitant]
     Active Substance: DIPHENHYDRAMINE
  15. HYDROCHLOROTHIAZIDE (+) VALSARTAN [Suspect]
     Active Substance: HYDROCHLOROTHIAZIDE\VALSARTAN
     Dosage: UNK
  16. PROPOFOL. [Suspect]
     Active Substance: PROPOFOL
     Dosage: ADDITIONAL 50 MG, UNK
  17. PROPOFOL. [Suspect]
     Active Substance: PROPOFOL
     Dosage: INFUSION RATE: 50 MICROGRAM/KG/MIN
     Route: 042
  18. MIDAZOLAM [Concomitant]
     Active Substance: MIDAZOLAM HYDROCHLORIDE
  19. FENTANYL. [Suspect]
     Active Substance: FENTANYL
     Indication: INDUCTION OF ANAESTHESIA
     Dosage: 150 MICROGRAM (ALSO REPORTED AS 1.5 MICROGRAM/KG)
  20. OXYCODONE [Concomitant]
     Active Substance: OXYCODONE
  21. SILDENAFIL CITRATE. [Suspect]
     Active Substance: SILDENAFIL CITRATE
     Dosage: 100 MG, UNK
  22. OXYGEN. [Concomitant]
     Active Substance: OXYGEN
     Dosage: MASK VENTILATION
     Route: 055
  23. TESTOSTERONE. [Suspect]
     Active Substance: TESTOSTERONE
     Dosage: 30 MG/1.5ML
     Route: 062
  24. SCOPOLAMINE [Concomitant]
     Active Substance: SCOPOLAMINE
     Indication: PROPHYLAXIS OF NAUSEA AND VOMITING
     Dosage: 1.5 MG, UNK
     Route: 062
  25. OMEPRAZOLE. [Concomitant]
     Active Substance: OMEPRAZOLE
     Dosage: 20 MG, UNK
  26. ONDANSETRON [Concomitant]
     Active Substance: ONDANSETRON
     Dosage: 4 MG, UNK
     Route: 042
  27. HYDROMORPHONE [Concomitant]
     Active Substance: HYDROMORPHONE
  28. LACTATED RINGERS SOLUTION FUSO [Concomitant]
  29. SEVOFLURANE. [Concomitant]
     Active Substance: SEVOFLURANE
  30. TRAZODONE HYDROCHLORIDE. [Concomitant]
     Active Substance: TRAZODONE HYDROCHLORIDE
  31. FENTANYL. [Suspect]
     Active Substance: FENTANYL
     Dosage: 100 MICROGRAM, UNK
  32. OXYGEN. [Concomitant]
     Active Substance: OXYGEN
     Dosage: UNK, TO ACHIEVE AN END-TIDAL CONCENTRATION OF 6.0% TO 6.5%

REACTIONS (1)
  - Hypotension [Recovered/Resolved]
